FAERS Safety Report 9169918 (Version 4)
Quarter: 2013Q3

REPORT INFORMATION
  Report Type: Spontaneous
  Country: CO (occurrence: CO)
  Receive Date: 20130319
  Receipt Date: 20130722
  Transmission Date: 20140515
  Serious: Yes (Hospitalization, Other)
  Sender: FDA-Public Use
  Company Number: CO-BIOGENIDEC-2013BI022979

PATIENT
  Age: 66 Year
  Sex: Female

DRUGS (3)
  1. TYSABRI [Suspect]
     Indication: RELAPSING-REMITTING MULTIPLE SCLEROSIS
     Route: 042
     Dates: start: 20120701, end: 20130214
  2. PREGABALIN [Concomitant]
  3. VITAMIN D3 [Concomitant]

REACTIONS (2)
  - Progressive multifocal leukoencephalopathy [Unknown]
  - Depression [Unknown]
